FAERS Safety Report 7827688-7 (Version None)
Quarter: 2011Q4

REPORT INFORMATION
  Report Type: 
  Country: None (occurrence: None)
  Receive Date: 20111019
  Receipt Date: 20111019
  Transmission Date: 20120403
  Serious: Yes (Life-Threatening, Hospitalization)
  Sender: FDA-Public Use
  Company Number: None

PATIENT
  Age: 63 Year
  Sex: Male
  Weight: 90 kg

DRUGS (1)
  1. METHADONE HCL [Suspect]
     Indication: DRUG ABUSE
     Dosage: 30MG DAILY PO
     Route: 048

REACTIONS (6)
  - CARDIAC ARREST [None]
  - BLOOD GLUCOSE DECREASED [None]
  - BALANCE DISORDER [None]
  - ASTHENIA [None]
  - ELECTROCARDIOGRAM QT PROLONGED [None]
  - HYPOTHERMIA [None]
